FAERS Safety Report 8992997 (Version 1)
Quarter: 2013Q1

REPORT INFORMATION
  Report Type: Spontaneous
  Country: US (occurrence: US)
  Receive Date: 20130102
  Receipt Date: 20130102
  Transmission Date: 20140127
  Serious: No
  Sender: FDA-Public Use
  Company Number: PHEH2012US025577

PATIENT
  Sex: Female
  Weight: 62.59 kg

DRUGS (5)
  1. TASIGNA [Suspect]
  2. ATENOLOL [Concomitant]
     Route: 048
  3. ZYRTEC [Concomitant]
     Dosage: 10 MG, PER DAY
     Route: 048
  4. DIFLUCAN [Concomitant]
     Indication: PROPHYLAXIS
     Dosage: 200 MG, PER DAY
     Route: 048
     Dates: start: 20120311
  5. VALTREX [Concomitant]
     Dosage: 500 MG, BID
     Route: 048

REACTIONS (1)
  - Rash [Unknown]
